FAERS Safety Report 23524533 (Version 1)
Quarter: 2024Q1

REPORT INFORMATION
  Report Type: Spontaneous
  Country: US (occurrence: US)
  Receive Date: 20240214
  Receipt Date: 20240214
  Transmission Date: 20240409
  Serious: No
  Sender: FDA-Public Use
  Company Number: US-009507513-2402USA002610

PATIENT
  Age: 77 Year
  Sex: Male

DRUGS (2)
  1. BELSOMRA [Suspect]
     Active Substance: SUVOREXANT
     Indication: Insomnia
     Dosage: UNK
     Route: 048
     Dates: start: 20240128
  2. GABAPENTIN [Suspect]
     Active Substance: GABAPENTIN

REACTIONS (5)
  - Drug ineffective [Unknown]
  - Anxiety [Unknown]
  - Tension [Unknown]
  - Nervousness [Unknown]
  - Dry mouth [Unknown]

NARRATIVE: CASE EVENT DATE: 20240128
